FAERS Safety Report 15222487 (Version 2)
Quarter: 2018Q3

REPORT INFORMATION
  Report Type: Spontaneous
  Country: JP (occurrence: JP)
  Receive Date: 20180731
  Receipt Date: 20180910
  Transmission Date: 20181010
  Serious: Yes (Other)
  Sender: FDA-Public Use
  Company Number: JP-GILEAD-2016-0247799

PATIENT
  Age: 56 Year
  Sex: Female

DRUGS (2)
  1. HEPSERA [Suspect]
     Active Substance: ADEFOVIR DIPIVOXIL
     Indication: CHRONIC HEPATITIS B
     Dosage: 10 MG, QD
     Route: 048
     Dates: start: 20061114, end: 201312
  2. BARACLUDE [Concomitant]
     Active Substance: ENTECAVIR

REACTIONS (5)
  - Glomerulonephritis chronic [Unknown]
  - Fanconi syndrome acquired [Recovered/Resolved]
  - Hepatitis B DNA increased [Unknown]
  - Pain in extremity [Unknown]
  - Osteoporosis [Unknown]

NARRATIVE: CASE EVENT DATE: 201312
